FAERS Safety Report 12388865 (Version 1)
Quarter: 2016Q2

REPORT INFORMATION
  Report Type: Spontaneous
  Country: US (occurrence: None)
  Receive Date: 20160519
  Receipt Date: 20160519
  Transmission Date: 20160815
  Serious: No
  Sender: FDA-Public Use
  Company Number: None

PATIENT
  Age: 15 Year
  Sex: Male
  Weight: 79.83 kg

DRUGS (2)
  1. OLD SPICE APDO 6 BODY SPRAY WILL COLLECTION DEODORANT BODY SPRAY BEARGLOVE 3.75OZ THE PROCTER + GAMBLE COMPANY [Suspect]
     Active Substance: COSMETICS
     Dosage: ONE SPRAY TO NECK AND CHEST AREA, 1 ONLY
     Route: 061
     Dates: start: 20160303, end: 20160303
  2. OLD SPICE WILD COLLECTION BEARGLOVE INVISIBLE [Suspect]
     Active Substance: ALUMINUM ZIRCONIUM TRICHLOROHYDREX GLY

REACTIONS (19)
  - Swelling face [None]
  - Ocular hyperaemia [None]
  - Pharyngeal oedema [None]
  - Choking [None]
  - Rash [None]
  - Anaphylactic shock [None]
  - Erythema [None]
  - Nasal congestion [None]
  - Eyelid oedema [None]
  - Dyspnoea [None]
  - Rash papular [None]
  - Anaphylactic reaction [None]
  - Skin disorder [None]
  - Ear swelling [None]
  - Skin burning sensation [None]
  - Enlarged uvula [None]
  - Urticaria [None]
  - Eye swelling [None]
  - Skin swelling [None]

NARRATIVE: CASE EVENT DATE: 20160303
